FAERS Safety Report 10176521 (Version 1)
Quarter: 2014Q2

REPORT INFORMATION
  Report Type: Spontaneous
  Country: US (occurrence: US)
  Receive Date: 20140516
  Receipt Date: 20140516
  Transmission Date: 20141212
  Serious: Yes (Other)
  Sender: FDA-Public Use
  Company Number: US-SA-2014SA063123

PATIENT
  Sex: Male

DRUGS (1)
  1. NASACORT AQ [Suspect]
     Indication: HYPERSENSITIVITY
     Dosage: DOSE:2 SPRAYS EA NARES
     Route: 045
     Dates: start: 20140428, end: 20140504

REACTIONS (8)
  - Hypersensitivity [Not Recovered/Not Resolved]
  - Lip swelling [Not Recovered/Not Resolved]
  - Oral discomfort [Not Recovered/Not Resolved]
  - Skin exfoliation [Not Recovered/Not Resolved]
  - Lip pain [Not Recovered/Not Resolved]
  - Swelling face [Not Recovered/Not Resolved]
  - Swollen tongue [Not Recovered/Not Resolved]
  - Expired product administered [Unknown]
